FAERS Safety Report 7212743-5 (Version None)
Quarter: 2010Q4

REPORT INFORMATION
  Report Type: 
  Country: None (occurrence: None)
  Receive Date: 20101227
  Receipt Date: 20101213
  Transmission Date: 20110411
  Serious: Yes (Death)
  Sender: FDA-Public Use
  Company Number: AE 2009-048

PATIENT
  Age: 84 Year
  Sex: Female

DRUGS (12)
  1. FAZACLO ODT [Suspect]
     Indication: AGITATION
     Dosage: 37.5 MG PO DAILY
     Route: 048
     Dates: start: 20071121, end: 20081229
  2. FAZACLO ODT [Suspect]
     Indication: DEMENTIA
     Dosage: 37.5 MG PO DAILY
     Route: 048
     Dates: start: 20071121, end: 20081229
  3. FAZACLO ODT [Suspect]
     Indication: HALLUCINATION
     Dosage: 37.5 MG PO DAILY
     Route: 048
     Dates: start: 20071121, end: 20081229
  4. FERROUS SULFATE [Concomitant]
  5. LISINOPRIL [Concomitant]
  6. OMEPRAZOLE [Concomitant]
  7. PREDNISONE [Concomitant]
  8. SIMVASTATIN [Concomitant]
  9. MULTI-VITAMIN [Concomitant]
  10. METFORMIN [Concomitant]
  11. DEPAKOTE [Concomitant]
  12. ZETIA [Concomitant]

REACTIONS (1)
  - MYOCARDIAL ISCHAEMIA [None]
